FAERS Safety Report 9848782 (Version 1)
Quarter: 2014Q1

REPORT INFORMATION
  Report Type: Spontaneous
  Country: US (occurrence: None)
  Receive Date: 20140127
  Receipt Date: 20140127
  Transmission Date: 20141002
  Serious: Yes (Life-Threatening, Hospitalization)
  Sender: FDA-Public Use
  Company Number: None

PATIENT
  Age: 65 Year
  Sex: Male
  Weight: 134 kg

DRUGS (21)
  1. VITAMIN K [Suspect]
     Indication: PROCOAGULANT THERAPY
     Route: 042
     Dates: start: 20140119, end: 20140119
  2. CARVEDILOL [Concomitant]
  3. D51/2 NORMAL SALINE [Concomitant]
  4. DIOVAN [Concomitant]
  5. EPINEPHRINE DRIP [Concomitant]
  6. MORPHINE [Concomitant]
  7. POTASSIUM CHLORIDE [Concomitant]
  8. PANTOPRAZOLE [Concomitant]
  9. SPIRONOLACTONE [Concomitant]
  10. WARFARIN/COUMADIN [Concomitant]
  11. BUMEX/BUMETANIDE [Concomitant]
  12. BUDESONIDE+FORM/SYMBICRT [Concomitant]
  13. TRIAMCINOLONE/KENALOG [Concomitant]
  14. SPIRONOLACTONE/ALDACTONE [Concomitant]
  15. CARVEDILOL/COREG [Concomitant]
  16. LOSARTAN/COZAAR [Concomitant]
  17. OMEPRAZOLE/PRILOSEC [Concomitant]
  18. TRIAMCINOLONE [Concomitant]
  19. CETIRIZINE/ZYRTEC [Concomitant]
  20. HYDROCODONE+APAP/LORTAB [Concomitant]
  21. MULTIVITAMINS [Concomitant]

REACTIONS (1)
  - Cardiac arrest [None]
